FAERS Safety Report 19645076 (Version 1)
Quarter: 2021Q3

REPORT INFORMATION
  Report Type: Other
  Country: CA (occurrence: CA)
  Receive Date: 20210802
  Receipt Date: 20210802
  Transmission Date: 20211014
  Serious: Yes (Other)
  Sender: FDA-Public Use
  Company Number: CA-APOTEX-2021AP023940

PATIENT
  Sex: Female

DRUGS (2)
  1. ALENDRONATE [Suspect]
     Active Substance: ALENDRONATE SODIUM
     Indication: METASTASES TO BONE
     Dosage: UNK, Q.WK.
     Route: 065
  2. MELOXICAM. [Concomitant]
     Active Substance: MELOXICAM
     Indication: PRODUCT USED FOR UNKNOWN INDICATION
     Dosage: UNK
     Route: 065

REACTIONS (10)
  - Arthralgia [Unknown]
  - Burning sensation [Unknown]
  - Dysstasia [Unknown]
  - Arthritis [Unknown]
  - Eye irritation [Unknown]
  - Joint swelling [Unknown]
  - Abdominal discomfort [Unknown]
  - Pain [Unknown]
  - Nervousness [Unknown]
  - Eye pain [Unknown]
